FAERS Safety Report 7724637-7 (Version None)
Quarter: 2011Q3

REPORT INFORMATION
  Report Type: 
  Country: None (occurrence: None)
  Receive Date: 20110901
  Receipt Date: 20110830
  Transmission Date: 20111222
  Serious: Yes (Death, Hospitalization, Other)
  Sender: FDA-Public Use
  Company Number: US-AMGEN-USASP2011039592

PATIENT
  Age: 88 Year
  Sex: Male

DRUGS (12)
  1. CARVEDILOL [Concomitant]
     Dosage: 0.5 MG, QD
  2. PREDNISONE [Concomitant]
     Dosage: 4 MG, QD
  3. MIRALAX [Concomitant]
     Dosage: 17 MG, QD
  4. RANITIDINE [Concomitant]
     Dosage: 150 MG, BID
  5. MYCOPHENOLATE MOFETIL [Concomitant]
     Indication: IDIOPATHIC THROMBOCYTOPENIC PURPURA
     Dosage: 500 MG, BID
  6. LISINOPRIL [Concomitant]
     Dosage: 5 MG, QD
  7. NPLATE [Suspect]
     Indication: IDIOPATHIC THROMBOCYTOPENIC PURPURA
     Dosage: 10 MUG/KG, UNK
     Route: 058
     Dates: start: 20101029, end: 20110420
  8. CLONIDINE [Concomitant]
     Dosage: 0.1 MG, BID
  9. OXYCODONE HCL [Concomitant]
     Dosage: 5 MG, PRN
  10. VINCRISTINE [Concomitant]
     Indication: IDIOPATHIC THROMBOCYTOPENIC PURPURA
  11. BISACODYL [Concomitant]
     Dosage: UNK UNK, PRN
  12. LASIX [Concomitant]
     Dosage: 40 MG, QD

REACTIONS (17)
  - IDIOPATHIC THROMBOCYTOPENIC PURPURA [None]
  - CIRCULATORY COLLAPSE [None]
  - DEVICE OCCLUSION [None]
  - GENERAL PHYSICAL HEALTH DETERIORATION [None]
  - DECUBITUS ULCER [None]
  - DEHYDRATION [None]
  - ECCHYMOSIS [None]
  - FAILURE TO THRIVE [None]
  - ANAEMIA [None]
  - MOUTH HAEMORRHAGE [None]
  - POST PROCEDURAL COMPLICATION [None]
  - MENTAL STATUS CHANGES [None]
  - HYPOTENSION [None]
  - THERAPEUTIC RESPONSE DECREASED [None]
  - NEUROPATHY PERIPHERAL [None]
  - KETOACIDOSIS [None]
  - SYNCOPE [None]
